FAERS Safety Report 5533882-0 (Version None)
Quarter: 2007Q4

REPORT INFORMATION
  Report Type: 
  Country: None (occurrence: None)
  Receive Date: 20071129
  Receipt Date: 20071114
  Transmission Date: 20080405
  Serious: Yes (Hospitalization)
  Sender: FDA-Public Use
  Company Number: PAR_01803_2007

PATIENT
  Age: 14 Year

DRUGS (2)
  1. IBUPROFEN [Suspect]
     Indication: OVERDOSE
     Dosage: (DF-NOT THE PRESCRIBED AMOUNT ORAL)
     Route: 048
  2. ACETAMINOPHEN [Suspect]
     Indication: INTENTIONAL OVERDOSE
     Dosage: (DF-NOT THE PRESCRIBED AMOUNT)

REACTIONS (2)
  - OVERDOSE [None]
  - VISION BLURRED [None]
